FAERS Safety Report 13929514 (Version 2)
Quarter: 2018Q3

REPORT INFORMATION
  Report Type: Spontaneous
  Country: US (occurrence: US)
  Receive Date: 20170901
  Receipt Date: 20180924
  Transmission Date: 20181010
  Serious: No
  Sender: FDA-Public Use
  Company Number: PHEH2017US027615

PATIENT
  Sex: Male

DRUGS (3)
  1. AFINITOR [Suspect]
     Active Substance: EVEROLIMUS
     Indication: NEUROENDOCRINE TUMOUR
     Dosage: 10 MG, QD
     Route: 065
  2. AFINITOR [Suspect]
     Active Substance: EVEROLIMUS
     Dosage: UNK
     Route: 065
  3. TELOTRISTAT ETHYL [Suspect]
     Active Substance: TELOTRISTAT ETHYL
     Indication: NEUROENDOCRINE TUMOUR
     Dosage: 250 MG, QD
     Route: 048

REACTIONS (8)
  - Blood glucose increased [Not Recovered/Not Resolved]
  - Hypertension [Not Recovered/Not Resolved]
  - Flatulence [Not Recovered/Not Resolved]
  - Dermatitis acneiform [Not Recovered/Not Resolved]
  - Diarrhoea [Unknown]
  - Rash [Unknown]
  - Abdominal pain [Unknown]
  - Abdominal distension [Not Recovered/Not Resolved]
